FAERS Safety Report 6160201-1 (Version None)
Quarter: 2009Q2

REPORT INFORMATION
  Report Type: 
  Country: None (occurrence: None)
  Receive Date: 20090420
  Receipt Date: 20090413
  Transmission Date: 20091009
  Serious: Yes (Other)
  Sender: FDA-Public Use
  Company Number: A0779438A

PATIENT
  Age: 85 Year
  Sex: Male
  Weight: 61.2 kg

DRUGS (8)
  1. MELPHALAN [Suspect]
     Indication: MULTIPLE MYELOMA
     Dates: start: 20090201
  2. VELCADE [Suspect]
     Indication: MULTIPLE MYELOMA
     Route: 042
     Dates: start: 20090209
  3. PREDNISONE [Suspect]
     Indication: MULTIPLE MYELOMA
     Dates: start: 20090201
  4. ENALAPRIL [Concomitant]
  5. ZOCOR [Concomitant]
  6. TOPROL-XL [Concomitant]
  7. LASIX [Concomitant]
  8. GLUCOTROL [Concomitant]

REACTIONS (2)
  - INFECTION [None]
  - TESTICULAR SWELLING [None]
